FAERS Safety Report 5211939-1 (Version None)
Quarter: 2007Q1

REPORT INFORMATION
  Report Type: 
  Country: None (occurrence: None)
  Receive Date: 20070116
  Receipt Date: 20070102
  Transmission Date: 20070707
  Serious: Yes (Hospitalization)
  Sender: FDA-Public Use
  Company Number: 2006-04-0952

PATIENT
  Age: 82 Year
  Sex: Female

DRUGS (14)
  1. INTEGRILIN [Suspect]
     Indication: ACUTE CORONARY SYNDROME
     Dosage: IV
     Route: 042
     Dates: start: 20060310, end: 20060310
  2. DIANTALVIC (DI-GESIC) [Suspect]
     Indication: DRUG USE FOR UNKNOWN INDICATION
     Dosage: 6 DF; PO
     Route: 048
     Dates: start: 20060310, end: 20060313
  3. PANTOPRAZOLE SODIUM [Suspect]
     Indication: DRUG USE FOR UNKNOWN INDICATION
     Dosage: 20 MG; QD; PO
     Route: 048
     Dates: start: 20060309, end: 20060313
  4. FORADIL [Concomitant]
  5. LOVENOX [Concomitant]
  6. ASPIRIN [Concomitant]
  7. PACLITAXEL [Concomitant]
  8. HEXABRIX [Concomitant]
  9. PLAVIX [Concomitant]
  10. DIAMICRON [Concomitant]
  11. PERINDOPRIL ERBUMINE [Concomitant]
  12. VASTEN [Concomitant]
  13. ISOPTIN [Concomitant]
  14. PULMICORT [Concomitant]

REACTIONS (1)
  - ACUTE GENERALISED EXANTHEMATOUS PUSTULOSIS [None]
